FAERS Safety Report 5554242-2 (Version None)
Quarter: 2007Q4

REPORT INFORMATION
  Report Type: 
  Country: None (occurrence: None)
  Receive Date: 20071213
  Receipt Date: 20071206
  Transmission Date: 20080405
  Serious: Yes (Hospitalization)
  Sender: FDA-Public Use
  Company Number: A0666840A

PATIENT
  Age: 51 Year
  Sex: Female

DRUGS (2)
  1. LAPATINIB [Suspect]
     Dosage: 1500MG PER DAY
     Route: 048
  2. BEVACIZUMAB [Suspect]
     Dosage: 10MGM2 CYCLIC
     Route: 042

REACTIONS (2)
  - EXFOLIATIVE RASH [None]
  - PYREXIA [None]
